FAERS Safety Report 20932226 (Version 1)
Quarter: 2022Q2

REPORT INFORMATION
  Report Type: Spontaneous
  Country: US (occurrence: None)
  Receive Date: 20220608
  Receipt Date: 20220608
  Transmission Date: 20220721
  Serious: No
  Sender: FDA-Public Use
  Company Number: US-ROCHE-2884533

PATIENT

DRUGS (1)
  1. ACTEMRA [Suspect]
     Active Substance: TOCILIZUMAB
     Indication: Product used for unknown indication
     Dosage: 600MG DOSE AND IT WAS DILUTED IN SODIUM CHLORIDE.
     Route: 042

REACTIONS (2)
  - Product temperature excursion issue [Unknown]
  - No adverse event [Unknown]
